FAERS Safety Report 5154762-9 (Version None)
Quarter: 2006Q4

REPORT INFORMATION
  Report Type: 
  Country: None (occurrence: None)
  Receive Date: 20061115
  Receipt Date: 20061115
  Transmission Date: 20070319
  Serious: Yes (Other)
  Sender: FDA-Public Use
  Company Number: None

PATIENT
  Age: 60 Year
  Sex: Male
  Weight: 101.6057 kg

DRUGS (1)
  1. RITUXAN [Suspect]
     Indication: LYMPHOMA
     Dosage: 800 MG  Q MONTH  IV
     Route: 042
     Dates: start: 20061113, end: 20061113

REACTIONS (2)
  - INFUSION RELATED REACTION [None]
  - PRURITUS [None]
